FAERS Safety Report 6698772-9 (Version None)
Quarter: 2010Q2

REPORT INFORMATION
  Report Type: 
  Country: None (occurrence: None)
  Receive Date: 20100427
  Receipt Date: 20100416
  Transmission Date: 20101027
  Serious: Yes (Disabling, Other)
  Sender: FDA-Public Use
  Company Number: PHHY2010FI26034

PATIENT
  Sex: Female

DRUGS (7)
  1. STALEVO 100 [Suspect]
     Indication: PARKINSON'S DISEASE
     Dosage: 100 MG, QID
     Route: 048
  2. ELDEPRYL [Interacting]
     Indication: PARKINSON'S DISEASE
     Dosage: 10 MG
     Route: 048
  3. SINEMET [Interacting]
     Indication: PARKINSON'S DISEASE
     Dosage: 200 MG X 1/2 AS NEEDED
     Route: 048
  4. ALENDRONATE SODIUM [Interacting]
     Indication: OSTEOPENIA
     Dosage: 1 DF, QW
     Dates: start: 20100220, end: 20100329
  5. SIFROL [Interacting]
     Indication: PARKINSON'S DISEASE
     Dosage: 0.7 MG
     Route: 048
  6. IDEOS [Concomitant]
  7. IMOVANE [Concomitant]
     Dosage: AS NEEDED

REACTIONS (6)
  - DRUG INTERACTION [None]
  - MUSCULOSKELETAL STIFFNESS [None]
  - NEUROPATHIC ARTHROPATHY [None]
  - OSTEOPENIA [None]
  - PARKINSON'S DISEASE [None]
  - TREMOR [None]
